FAERS Safety Report 5925020-7 (Version None)
Quarter: 2008Q3

REPORT INFORMATION
  Report Type: 
  Country: None (occurrence: None)
  Receive Date: 20080909
  Receipt Date: 20070827
  Transmission Date: 20090109
  Serious: Yes (Hospitalization)
  Sender: FDA-Public Use
  Company Number: 163-20785-07081597

PATIENT
  Age: 63 Year
  Sex: Female

DRUGS (1)
  1. THALOMID [Suspect]
     Indication: MULTIPLE MYELOMA
     Dosage: 200 MG, 4 IN 1 D, ORAL
     Route: 048
     Dates: start: 20070808

REACTIONS (2)
  - ANAEMIA [None]
  - PNEUMONIA [None]
